FAERS Safety Report 7144829-8 (Version None)
Quarter: 2010Q4

REPORT INFORMATION
  Report Type: 
  Country: None (occurrence: None)
  Receive Date: 20101123
  Receipt Date: 20101112
  Transmission Date: 20110411
  Serious: Yes (Other)
  Sender: FDA-Public Use
  Company Number: 2010AP002412

PATIENT
  Age: 69 Year
  Sex: Male

DRUGS (12)
  1. PRAVASTATIN SODIUM [Suspect]
     Dosage: 20 MG;QD
  2. SIMVASTATIN [Suspect]
  3. ATENOLOL [Suspect]
     Dosage: 25 MG;QD
  4. CANDESARTAN CILEXETIL [Suspect]
     Dosage: 8 MG;QD
  5. FLURBIPROFEN [Suspect]
     Dosage: 50 MG; BID
  6. FOLIC ACID [Suspect]
     Dosage: 15 MG;QW
  7. ISOSORBIDE MONONITRATE [Suspect]
     Dosage: 30 MG;BID
  8. LANSOPRAZOLE [Suspect]
     Dosage: 30 MG;QD
  9. METHOTREXATE [Suspect]
     Dosage: 17.5 MG;QW
  10. NICORANDIL (NICORANDIL) [Suspect]
     Dosage: 10 MG;BID
  11. ASPIRIN [Concomitant]
  12. CALCIPOTRIOL (CALCIPOTRIOL) [Concomitant]

REACTIONS (1)
  - ABNORMAL DREAMS [None]
